FAERS Safety Report 7513383-0 (Version None)
Quarter: 2011Q2

REPORT INFORMATION
  Report Type: 
  Country: None (occurrence: None)
  Receive Date: 20110525
  Receipt Date: 20110525
  Transmission Date: 20111010
  Serious: Yes (Other)
  Sender: FDA-Public Use
  Company Number: None

PATIENT
  Age: 69 Year
  Sex: Female
  Weight: 81.6475 kg

DRUGS (1)
  1. AMBIEN [Suspect]
     Dosage: 1 AT BEDTIME

REACTIONS (3)
  - SLEEP-RELATED EATING DISORDER [None]
  - ABNORMAL DREAMS [None]
  - AMNESIA [None]
